FAERS Safety Report 9167983 (Version 3)
Quarter: 2014Q1

REPORT INFORMATION
  Report Type: Spontaneous
  Country: GB (occurrence: None)
  Receive Date: 20130305
  Receipt Date: 20140131
  Transmission Date: 20141002
  Serious: Yes (Other)
  Sender: FDA-Public Use
  Company Number: AUR-APL-2013-01819

PATIENT
  Age: 28 Year
  Sex: Female

DRUGS (2)
  1. MIRTAZAPINE (MIRTAZAPINE) [Suspect]
     Indication: DEPRESSION
     Route: 048
     Dates: start: 20121208, end: 20121216
  2. CITALOPRAM (CITALOPRAM) [Concomitant]

REACTIONS (3)
  - Mouth haemorrhage [None]
  - Gingival bleeding [None]
  - Insomnia [None]
